FAERS Safety Report 25216112 (Version 1)
Quarter: 2025Q2

REPORT INFORMATION
  Report Type: Spontaneous
  Country: CA (occurrence: CA)
  Receive Date: 20250418
  Receipt Date: 20250418
  Transmission Date: 20250716
  Serious: Yes (Other)
  Sender: ROCHE
  Company Number: CA-ROCHE-10000257104

PATIENT
  Age: 9 Year
  Sex: Female
  Weight: 44 kg

DRUGS (12)
  1. SOMATROPIN [Suspect]
     Active Substance: SOMATROPIN
     Indication: Growth hormone deficiency
     Route: 058
  2. SOMATROPIN [Suspect]
     Active Substance: SOMATROPIN
     Route: 058
  3. SOMATROPIN [Suspect]
     Active Substance: SOMATROPIN
     Route: 058
  4. SOMATROPIN [Suspect]
     Active Substance: SOMATROPIN
     Route: 058
  5. SOMATROPIN [Suspect]
     Active Substance: SOMATROPIN
     Route: 058
  6. SOMATROPIN [Suspect]
     Active Substance: SOMATROPIN
     Route: 058
  7. SOMATROPIN [Suspect]
     Active Substance: SOMATROPIN
     Route: 065
  8. SOMATROPIN [Suspect]
     Active Substance: SOMATROPIN
     Route: 058
  9. DESMOPRESSIN [Concomitant]
     Active Substance: DESMOPRESSIN
     Route: 048
  10. ESTRADIOL [Concomitant]
     Active Substance: ESTRADIOL
     Indication: Hormone replacement therapy
  11. PREDNISOLONE SODIUM PHOSPHATE [Concomitant]
     Active Substance: PREDNISOLONE SODIUM PHOSPHATE
     Route: 048
  12. SYNTHROID [Concomitant]
     Active Substance: LEVOTHYROXINE SODIUM
     Route: 048

REACTIONS (4)
  - Acromegaly [Not Recovered/Not Resolved]
  - Glucose tolerance impaired [Not Recovered/Not Resolved]
  - Incorrect dose administered [Unknown]
  - Product dispensing error [Unknown]
